FAERS Safety Report 16858765 (Version 1)
Quarter: 2019Q3

REPORT INFORMATION
  Report Type: Spontaneous
  Country: JP (occurrence: JP)
  Receive Date: 20190926
  Receipt Date: 20190926
  Transmission Date: 20191005
  Serious: Yes (Death, Hospitalization, Other)
  Sender: FDA-Public Use
  Company Number: JP-BRISTOL-MYERS SQUIBB COMPANY-BMS-2019-073375

PATIENT
  Age: 74 Year
  Sex: Male

DRUGS (1)
  1. OPDIVO [Suspect]
     Active Substance: NIVOLUMAB
     Indication: GASTRIC CANCER
     Dosage: 240 MG, TWICE A MONTH
     Route: 041
     Dates: start: 20190705, end: 20190705

REACTIONS (3)
  - Myasthenia gravis [Unknown]
  - Rhabdomyolysis [Fatal]
  - Myocarditis [Fatal]

NARRATIVE: CASE EVENT DATE: 20190718
